FAERS Safety Report 19273273 (Version 3)
Quarter: 2021Q3

REPORT INFORMATION
  Report Type: Report from Study
  Country: TW (occurrence: TW)
  Receive Date: 20210519
  Receipt Date: 20210818
  Transmission Date: 20211014
  Serious: Yes (Other)
  Sender: FDA-Public Use
  Company Number: TW-REGENERON PHARMACEUTICALS, INC.-2021-47547

PATIENT

DRUGS (4)
  1. EYLEA [Suspect]
     Active Substance: AFLIBERCEPT
     Dosage: 0.05 ML, ONCE(RECEIVED A TOTAL OF 5 INJECTION),RIGHT EYE
     Route: 031
     Dates: start: 202011
  2. EYLEA [Suspect]
     Active Substance: AFLIBERCEPT
     Dosage: 0.05 ML, ONCE(LAST INJECTION PRIOR TO EVENT)
     Route: 031
     Dates: start: 20210804
  3. EYLEA [Suspect]
     Active Substance: AFLIBERCEPT
     Dosage: 0.05 ML, ONCE RIGHT EYE
     Route: 031
     Dates: start: 20210423, end: 20210423
  4. EYLEA [Suspect]
     Active Substance: AFLIBERCEPT
     Indication: NEOVASCULAR AGE-RELATED MACULAR DEGENERATION
     Dosage: 0.05 ML, ONCE, RIGHT EYE
     Route: 031
     Dates: start: 2011, end: 2011

REACTIONS (6)
  - Retinal vascular thrombosis [Recovered/Resolved]
  - Injection site pain [Unknown]
  - Dyschromatopsia [Not Recovered/Not Resolved]
  - Inappropriate schedule of product administration [Unknown]
  - Vision blurred [Recovering/Resolving]
  - Neovascular age-related macular degeneration [Not Recovered/Not Resolved]

NARRATIVE: CASE EVENT DATE: 2011
